FAERS Safety Report 10184270 (Version 2)
Quarter: 2014Q2

REPORT INFORMATION
  Report Type: Spontaneous
  Country: US (occurrence: US)
  Receive Date: 20140520
  Receipt Date: 20140520
  Transmission Date: 20141212
  Serious: No
  Sender: FDA-Public Use
  Company Number: US-ASTRAZENECA-2013SE51338

PATIENT
  Age: 46 Year
  Sex: Male
  Weight: 95.3 kg

DRUGS (3)
  1. RHINOCORT AQUA [Suspect]
     Dosage: 32 MCG
     Route: 045
  2. CLARINEX D [Concomitant]
  3. ACIPHEX [Concomitant]

REACTIONS (2)
  - Sinus headache [Recovered/Resolved]
  - Nasal discomfort [Recovered/Resolved]
